FAERS Safety Report 20298832 (Version 2)
Quarter: 2022Q2

REPORT INFORMATION
  Report Type: Report from Study
  Country: US (occurrence: US)
  Receive Date: 20220105
  Receipt Date: 20220420
  Transmission Date: 20220720
  Serious: Yes (Hospitalization)
  Sender: FDA-Public Use
  Company Number: US-JNJFOC-20220100716

PATIENT
  Age: 21 Year
  Sex: Female
  Weight: 72.186 kg

DRUGS (2)
  1. INFLIXIMAB [Suspect]
     Active Substance: INFLIXIMAB
     Indication: Inflammatory bowel disease
     Route: 042
     Dates: start: 20051014
  2. STELARA [Concomitant]
     Active Substance: USTEKINUMAB
     Dates: start: 20210609

REACTIONS (1)
  - Malnutrition [Recovered/Resolved with Sequelae]

NARRATIVE: CASE EVENT DATE: 20200601
